FAERS Safety Report 7611203-7 (Version None)
Quarter: 2011Q3

REPORT INFORMATION
  Report Type: 
  Country: None (occurrence: None)
  Receive Date: 20110715
  Receipt Date: 20110704
  Transmission Date: 20111222
  Serious: Yes (Other)
  Sender: FDA-Public Use
  Company Number: IT-JNJFOC-20110702357

PATIENT
  Age: 30 Year
  Sex: Female

DRUGS (3)
  1. REMICADE [Suspect]
     Indication: RHEUMATOID ARTHRITIS
     Route: 042
     Dates: start: 20080216
  2. METHOTREXATE [Concomitant]
     Route: 065
  3. LEUCOVORIN CALCIUM [Concomitant]
     Route: 065

REACTIONS (1)
  - BLOOD LACTATE DEHYDROGENASE INCREASED [None]
